FAERS Safety Report 10565490 (Version 3)
Quarter: 2014Q4

REPORT INFORMATION
  Report Type: Spontaneous
  Country: US (occurrence: US)
  Receive Date: 20141105
  Receipt Date: 20141202
  Transmission Date: 20150529
  Serious: No
  Sender: FDA-Public Use
  Company Number: US-PFIZER INC-2014303831

PATIENT
  Age: 78 Year
  Sex: Female

DRUGS (14)
  1. SUTENT [Suspect]
     Active Substance: SUNITINIB MALATE
     Dosage: 12.5 MG, DAILY  (2 TABS BY MOUTH DAILY)
     Route: 048
     Dates: start: 20131129, end: 20140329
  2. DIOVAN [Concomitant]
     Active Substance: VALSARTAN
     Dosage: 80 MG, 3X/DAY
     Route: 048
  3. ASPIRIN. [Concomitant]
     Active Substance: ASPIRIN
     Dosage: 81 MG, 1X/DAY EVERY MORNING
  4. FESOTERODINE [Concomitant]
     Active Substance: FESOTERODINE
     Indication: BLADDER DYSFUNCTION
     Dosage: 8 MG, 1X/DAY (EVERY MORNING)
  5. WOMEN^S ONE A DAY [Concomitant]
     Dosage: 1 TAB DAILY
  6. LATANOPROST. [Concomitant]
     Active Substance: LATANOPROST
     Dosage: 1 DF, 1X/DAY (1 DROP IN EACH EYE AT BEDTIME)
  7. OMEPRAZOLE. [Concomitant]
     Active Substance: OMEPRAZOLE
     Dosage: 20 MG, 1X/DAY EVERY MORNING
  8. SUTENT [Suspect]
     Active Substance: SUNITINIB MALATE
     Dosage: 12.5 MG, DAILY (3 TABS BY MOUTH DAILY)
     Route: 048
     Dates: start: 20130801, end: 20131128
  9. PRAVASTATIN [Concomitant]
     Active Substance: PRAVASTATIN\PRAVASTATIN SODIUM
     Dosage: 40 MG, DAILY
  10. SUTENT [Suspect]
     Active Substance: SUNITINIB MALATE
     Dosage: UNK
     Dates: start: 20140121
  11. VERAPAMIL [Concomitant]
     Active Substance: VERAPAMIL HYDROCHLORIDE
     Dosage: 40 MG, 2X/DAY
  12. SUTENT [Suspect]
     Active Substance: SUNITINIB MALATE
     Indication: RENAL CELL CARCINOMA
     Dosage: 12.5 MG, DAILY (TAKE 4 CAPS DAILY)
     Route: 048
     Dates: start: 20130328, end: 20130411
  13. SUTENT [Suspect]
     Active Substance: SUNITINIB MALATE
     Dosage: 12.5 MG, DAILY  (3 CAPS BY MOUTH DAILY)
     Route: 048
     Dates: start: 20130419, end: 20130422
  14. SUTENT [Suspect]
     Active Substance: SUNITINIB MALATE
     Dosage: 12.5 MG, DAILY (4 TABS BY MOUTH DAILY)
     Route: 048
     Dates: start: 20130423, end: 20130722

REACTIONS (3)
  - Renal cell carcinoma [Unknown]
  - Nervous system disorder [Unknown]
  - Disease progression [Unknown]
